FAERS Safety Report 6304905-6 (Version None)
Quarter: 2009Q3

REPORT INFORMATION
  Report Type: 
  Country: None (occurrence: None)
  Receive Date: 20090811
  Receipt Date: 20090731
  Transmission Date: 20100115
  Serious: Yes (Other)
  Sender: FDA-Public Use
  Company Number: US-ELI_LILLY_AND_COMPANY-US200906001440

PATIENT
  Sex: Female

DRUGS (2)
  1. CYMBALTA [Suspect]
     Indication: MYALGIA
     Dosage: 30 MG, DAILY (1/D)
     Dates: start: 20080101, end: 20081201
  2. CELEXA [Concomitant]
     Dosage: UNK, UNK
     Dates: start: 20080801

REACTIONS (8)
  - ALANINE AMINOTRANSFERASE INCREASED [None]
  - BLINDNESS UNILATERAL [None]
  - BLOOD ALKALINE PHOSPHATASE INCREASED [None]
  - BLOOD GLUCOSE INCREASED [None]
  - HAEMATOCRIT INCREASED [None]
  - HAEMOGLOBIN INCREASED [None]
  - MEAN CELL VOLUME INCREASED [None]
  - OFF LABEL USE [None]
